FAERS Safety Report 22660335 (Version 1)
Quarter: 2023Q2

REPORT INFORMATION
  Report Type: Report from Study
  Country: CO (occurrence: CO)
  Receive Date: 20230630
  Receipt Date: 20230630
  Transmission Date: 20230721
  Serious: Yes (Other)
  Sender: FDA-Public Use
  Company Number: CO-ABBVIE-5308947

PATIENT
  Sex: Female

DRUGS (1)
  1. BOTOX [Suspect]
     Active Substance: ONABOTULINUMTOXINA
     Indication: Facial spasm
     Dosage: TIME INTERVAL: AS NECESSARY: FORM STRENGTH: 100 UNIT
     Route: 030
     Dates: start: 20221111, end: 20221111

REACTIONS (3)
  - Arthralgia [Recovering/Resolving]
  - Post procedural discomfort [Recovering/Resolving]
  - Procedural pain [Recovering/Resolving]

NARRATIVE: CASE EVENT DATE: 20230101
